FAERS Safety Report 22616256 (Version 1)
Quarter: 2023Q2

REPORT INFORMATION
  Report Type: Spontaneous
  Country: US (occurrence: US)
  Receive Date: 20230619
  Receipt Date: 20230619
  Transmission Date: 20230721
  Serious: Yes (Death)
  Sender: FDA-Public Use
  Company Number: US-TRAVERE-2023TVT00176

PATIENT
  Age: 1 Year
  Sex: Male

DRUGS (10)
  1. CHOLIC ACID [Suspect]
     Active Substance: CHOLIC ACID
     Indication: Cerebrohepatorenal syndrome
     Route: 048
     Dates: start: 20220401, end: 20230518
  2. VITAMINS [Concomitant]
     Active Substance: VITAMINS
  3. KEPPRA [Concomitant]
     Active Substance: LEVETIRACETAM
  4. FAMOTIDINE [Concomitant]
     Active Substance: FAMOTIDINE
  5. Omeprazole+Syrsp end [Concomitant]
  6. CLOBAZAM [Concomitant]
     Active Substance: CLOBAZAM
  7. GABAPENTIN [Concomitant]
     Active Substance: GABAPENTIN
  8. ALBUTEROL [Concomitant]
     Active Substance: ALBUTEROL
  9. SODIUM [Concomitant]
     Active Substance: SODIUM
  10. BUDESONIDE [Concomitant]
     Active Substance: BUDESONIDE

REACTIONS (1)
  - Death [Fatal]
